FAERS Safety Report 5876136-5 (Version None)
Quarter: 2008Q3

REPORT INFORMATION
  Report Type: 
  Country: None (occurrence: None)
  Receive Date: 20080910
  Receipt Date: 20080829
  Transmission Date: 20090109
  Serious: Yes (Other)
  Sender: FDA-Public Use
  Company Number: DE-ROCHE-583800

PATIENT
  Age: 31 Year
  Sex: Male

DRUGS (2)
  1. PEGASYS [Suspect]
     Indication: HEPATITIS C
     Dosage: THERAPY STARTED APPROXIMATELY 5 MONTHS AGO
     Route: 065
     Dates: start: 20080401
  2. RIBAVIRIN [Suspect]
     Indication: HEPATITIS C
     Dosage: THERAPY STARTED APPRX 5 MONTHS AGO
     Route: 065
     Dates: start: 20080401

REACTIONS (5)
  - ANAEMIA [None]
  - GRAND MAL CONVULSION [None]
  - INFLUENZA LIKE ILLNESS [None]
  - LEUKOPENIA [None]
  - TRANSAMINASES INCREASED [None]
